FAERS Safety Report 9778435 (Version 1)
Quarter: 2013Q4

REPORT INFORMATION
  Report Type: Spontaneous
  Country: IT (occurrence: IT)
  Receive Date: 20131223
  Receipt Date: 20131223
  Transmission Date: 20140711
  Serious: Yes (Life-Threatening)
  Sender: FDA-Public Use
  Company Number: IT-MYLANLABS-113AS20130497

PATIENT
  Age: 93 Year
  Sex: Male

DRUGS (6)
  1. LORAZEPAM [Suspect]
     Indication: COGNITIVE DISORDER
     Dosage: 1 MG DAILY
     Route: 048
     Dates: end: 20130920
  2. STILNOX [Suspect]
     Indication: COGNITIVE DISORDER
     Dosage: 10 MG DAILY
     Route: 048
     Dates: end: 20130920
  3. PANTORC [Concomitant]
     Indication: PROPHYLAXIS AGAINST GASTROINTESTINAL ULCER
     Route: 048
     Dates: end: 20130920
  4. SEROQUEL [Concomitant]
     Indication: PRODUCT USED FOR UNKNOWN INDICATION
     Route: 048
  5. HALDOL [Concomitant]
     Indication: AGITATION
     Route: 048
  6. CARDIOASPIRIN [Concomitant]
     Indication: THROMBOSIS PROPHYLAXIS
     Route: 048

REACTIONS (5)
  - Subdural haematoma [Recovering/Resolving]
  - Drop attacks [Recovering/Resolving]
  - Sepsis [Recovering/Resolving]
  - Cholecystitis acute [Recovering/Resolving]
  - Escherichia infection [Recovering/Resolving]
